FAERS Safety Report 5763597-5 (Version None)
Quarter: 2008Q2

REPORT INFORMATION
  Report Type: 
  Country: None (occurrence: None)
  Receive Date: 20080610
  Receipt Date: 20080530
  Transmission Date: 20081010
  Serious: Yes (Hospitalization)
  Sender: FDA-Public Use
  Company Number: PHHO2007AU16610

PATIENT
  Sex: Male
  Weight: 98 kg

DRUGS (5)
  1. RAD 666 RAD+TAB+PTR [Suspect]
     Indication: RENAL TRANSPLANT
     Dosage: 0.75 MG/DAILY
     Route: 048
     Dates: start: 20061121, end: 20071010
  2. RAD 666 RAD+TAB+PTR [Suspect]
     Dosage: 0.75 MG/DAILY
     Route: 048
     Dates: start: 20071011, end: 20071012
  3. RAD 666 RAD+TAB+PTR [Suspect]
     Dosage: NO TREATMENT
     Dates: start: 20071012, end: 20071012
  4. RAD 666 RAD+TAB+PTR [Suspect]
     Dosage: 0.75 MG, DAILY
     Route: 048
  5. NEORAL [Suspect]
     Indication: RENAL TRANSPLANT
     Dates: end: 20071006

REACTIONS (10)
  - ABNORMAL BEHAVIOUR [None]
  - AGGRESSION [None]
  - AGITATION [None]
  - CONFUSIONAL STATE [None]
  - DIPLOPIA [None]
  - ELECTROLYTE IMBALANCE [None]
  - ENCEPHALOPATHY [None]
  - LETHARGY [None]
  - NERVOUS SYSTEM DISORDER [None]
  - NUTRITIONAL CONDITION ABNORMAL [None]
